FAERS Safety Report 24369379 (Version 1)
Quarter: 2024Q3

REPORT INFORMATION
  Report Type: Report from Study
  Country: US (occurrence: US)
  Receive Date: 20240927
  Receipt Date: 20240927
  Transmission Date: 20241016
  Serious: No
  Sender: ROCHE
  Company Number: US-ROCHE-3104011

PATIENT
  Age: 78 Year
  Sex: Male
  Weight: 86.18 kg

DRUGS (5)
  1. LUCENTIS [Suspect]
     Active Substance: RANIBIZUMAB
     Indication: Neovascular age-related macular degeneration
     Dosage: RECEIVED IN RIGHT EYE
     Route: 050
     Dates: start: 202307
  2. LUCENTIS [Suspect]
     Active Substance: RANIBIZUMAB
     Indication: Detachment of retinal pigment epithelium
     Dosage: RECEIVED IN RIGHT EYE
     Route: 050
     Dates: end: 202307
  3. LUCENTIS [Suspect]
     Active Substance: RANIBIZUMAB
     Route: 050
     Dates: start: 202205, end: 202307
  4. LUMIGAN [Concomitant]
     Active Substance: BIMATOPROST
     Indication: Glaucoma
  5. RHOPRESSA [Concomitant]
     Active Substance: NETARSUDIL MESYLATE
     Indication: Glaucoma
     Dates: start: 202307

REACTIONS (5)
  - Visual impairment [Recovered/Resolved]
  - Ocular hyperaemia [Not Recovered/Not Resolved]
  - Eye pain [Recovered/Resolved]
  - Mydriasis [Unknown]
  - Syringe issue [Unknown]

NARRATIVE: CASE EVENT DATE: 20220520
